FAERS Safety Report 17097234 (Version 1)
Quarter: 2019Q4

REPORT INFORMATION
  Report Type: Spontaneous
  Country: FR (occurrence: FR)
  Receive Date: 20191202
  Receipt Date: 20191202
  Transmission Date: 20200122
  Serious: Yes (Hospitalization)
  Sender: FDA-Public Use
  Company Number: FR-ACCORD-162894

PATIENT
  Age: 72 Year
  Sex: Male
  Weight: 86 kg

DRUGS (13)
  1. CLOPIDOGREL [Suspect]
     Active Substance: CLOPIDOGREL BISULFATE
     Indication: THROMBOSIS PROPHYLAXIS
     Route: 048
  2. PREGABALIN. [Concomitant]
     Active Substance: PREGABALIN
  3. NEBIVOLOL. [Concomitant]
     Active Substance: NEBIVOLOL
  4. LASILIX [Concomitant]
     Active Substance: FUROSEMIDE
     Dosage: STRENGTH: 40 MG, SCORED TABLET
  5. LINEZOLID. [Interacting]
     Active Substance: LINEZOLID
     Indication: OSTEITIS
     Route: 048
     Dates: start: 20190819, end: 20191003
  6. TAMSULOSIN/TAMSULOSIN HYDROCHLORIDE [Concomitant]
     Active Substance: TAMSULOSIN HYDROCHLORIDE
  7. VERATRAN [Concomitant]
     Active Substance: CLOTIAZEPAM
     Dosage: STRENGTH: 5 MG
  8. ZERBAXA [Interacting]
     Active Substance: CEFTOLOZANE SULFATE\TAZOBACTAM SODIUM
     Indication: OSTEITIS
     Dosage: CEFTOLOZANE 250 MG / DAY / TAZOBACTAM 125MG / DAY
     Route: 042
     Dates: start: 20190819, end: 20191003
  9. AMLODIPINE [Concomitant]
     Active Substance: AMLODIPINE BESYLATE
  10. LEVEMIR [Concomitant]
     Active Substance: INSULIN DETEMIR
  11. GALVUS [Concomitant]
     Active Substance: VILDAGLIPTIN
     Dosage: STRENGTH: 50 MG
  12. COUMADINE [Interacting]
     Active Substance: WARFARIN SODIUM
     Indication: ATRIAL FIBRILLATION
     Dosage: STRENGTH:  2 MG, SCORED TABLET
     Route: 048
     Dates: start: 20190913
  13. MACROGOL 4000 [Concomitant]
     Active Substance: POLYETHYLENE GLYCOL 4000

REACTIONS (4)
  - Drug interaction [Unknown]
  - Shock haemorrhagic [Recovered/Resolved]
  - Gastrointestinal haemorrhage [Recovered/Resolved]
  - Off label use [Unknown]

NARRATIVE: CASE EVENT DATE: 20191002
